FAERS Safety Report 17879554 (Version 1)
Quarter: 2020Q2

REPORT INFORMATION
  Report Type: Spontaneous
  Country: DE (occurrence: DE)
  Receive Date: 20200610
  Receipt Date: 20200610
  Transmission Date: 20200714
  Serious: Yes (Other)
  Sender: FDA-Public Use
  Company Number: NVSC2020DE160360

PATIENT
  Sex: Female
  Weight: 80 kg

DRUGS (1)
  1. ESTRAMON CONTI 30/95 MIKROGRAMM/24 H TRANSDERMALES PFLASTER [Suspect]
     Active Substance: ESTRADIOL\NORETHINDRONE ACETATE
     Indication: PRODUCT USED FOR UNKNOWN INDICATION
     Dosage: 2 DF, QW (30/95MIKROGRAMM/24H)
     Route: 062
     Dates: start: 20200323

REACTIONS (1)
  - Arrhythmia [Unknown]

NARRATIVE: CASE EVENT DATE: 20200406
